FAERS Safety Report 6738363-4 (Version None)
Quarter: 2010Q2

REPORT INFORMATION
  Report Type: 
  Country: None (occurrence: None)
  Receive Date: 20100520
  Receipt Date: 20100505
  Transmission Date: 20101027
  Serious: Yes (Hospitalization)
  Sender: FDA-Public Use
  Company Number: 8054424

PATIENT
  Sex: Male
  Weight: 50 kg

DRUGS (6)
  1. CERTOLIZUMAB PEGOL [Suspect]
     Indication: RHEUMATOID ARTHRITIS
     Dosage: 400 MG ONCE MONTHLY SUBCUTANEOUS, 400 MG ONCE MONTHLY SUBCUTANEOUS
     Route: 058
     Dates: start: 20030916, end: 20040203
  2. CERTOLIZUMAB PEGOL [Suspect]
     Indication: RHEUMATOID ARTHRITIS
     Dosage: 400 MG ONCE MONTHLY SUBCUTANEOUS, 400 MG ONCE MONTHLY SUBCUTANEOUS
     Route: 058
     Dates: start: 20040305, end: 20090814
  3. CELEBREX [Concomitant]
  4. ALEVE (CAPLET) [Concomitant]
  5. ACYCLOVIR [Concomitant]
  6. UNASYN [Concomitant]

REACTIONS (13)
  - CHEST PAIN [None]
  - CHRONIC OBSTRUCTIVE PULMONARY DISEASE [None]
  - CONSTIPATION [None]
  - COUGH [None]
  - GASTRITIS [None]
  - HERPES ZOSTER [None]
  - LUNG ADENOCARCINOMA [None]
  - METASTASES TO CENTRAL NERVOUS SYSTEM [None]
  - METASTASES TO LYMPH NODES [None]
  - MUSCULOSKELETAL PAIN [None]
  - NIGHT SWEATS [None]
  - RHEUMATOID ARTHRITIS [None]
  - WEIGHT DECREASED [None]
